FAERS Safety Report 6388938-X (Version None)
Quarter: 2009Q4

REPORT INFORMATION
  Report Type: 
  Country: None (occurrence: None)
  Receive Date: 20091001
  Receipt Date: 20090921
  Transmission Date: 20100525
  Serious: Yes (Hospitalization)
  Sender: FDA-Public Use
  Company Number: 2009AP003834

PATIENT
  Age: 50 Year
  Sex: Male

DRUGS (2)
  1. TERBINAFINE HCL [Suspect]
     Indication: TINEA PEDIS
     Dosage: 250 MG; PO;QD
     Route: 048
     Dates: start: 20090823, end: 20090908
  2. LANSOPRAZOLE [Concomitant]

REACTIONS (6)
  - ERYTHEMA [None]
  - FEELING HOT [None]
  - MYALGIA [None]
  - OEDEMA PERIPHERAL [None]
  - RASH [None]
  - RASH PRURITIC [None]
